FAERS Safety Report 9605555 (Version 1)
Quarter: 2013Q4

REPORT INFORMATION
  Report Type: Spontaneous
  Country: US (occurrence: US)
  Receive Date: 20131008
  Receipt Date: 20131008
  Transmission Date: 20140711
  Serious: No
  Sender: FDA-Public Use
  Company Number: US-PFIZER INC-2013286663

PATIENT
  Age: 58 Year
  Sex: Female
  Weight: 66.21 kg

DRUGS (3)
  1. LYRICA [Suspect]
     Indication: FIBROMYALGIA
     Dosage: 200 MG, 3X/DAY
     Route: 048
  2. LYRICA [Suspect]
     Indication: NERVE INJURY
  3. HYDROCODONE [Concomitant]
     Indication: PAIN
     Dosage: UNK, AS NEEDED

REACTIONS (5)
  - Malaise [Recovered/Resolved]
  - Diarrhoea [Recovered/Resolved]
  - Vomiting [Recovered/Resolved]
  - Food poisoning [Recovered/Resolved]
  - Gastroenteritis viral [Recovered/Resolved]
